FAERS Safety Report 8400035-8 (Version None)
Quarter: 2012Q2

REPORT INFORMATION
  Report Type: 
  Country: None (occurrence: None)
  Receive Date: 20120531
  Receipt Date: 20120528
  Transmission Date: 20120825
  Serious: Yes (Hospitalization, Other)
  Sender: FDA-Public Use
  Company Number: CO-ROCHE-1073731

PATIENT
  Age: 26 Year
  Sex: Female

DRUGS (3)
  1. XOLAIR [Suspect]
     Indication: RHINITIS
  2. FLUOXETINE [Concomitant]
  3. XOLAIR [Suspect]
     Indication: DERMATITIS

REACTIONS (3)
  - DEPRESSION [None]
  - DERMATITIS [None]
  - ALOPECIA [None]
